FAERS Safety Report 7937973-6 (Version None)
Quarter: 2011Q4

REPORT INFORMATION
  Report Type: 
  Country: None (occurrence: None)
  Receive Date: 20111123
  Receipt Date: 20111111
  Transmission Date: 20120403
  Serious: Yes (Other)
  Sender: FDA-Public Use
  Company Number: IT-CELGENEUS-083-20785-11112031

PATIENT

DRUGS (3)
  1. PREDNISONE TAB [Suspect]
     Indication: MULTIPLE MYELOMA
     Route: 065
  2. THALIDOMIDE [Suspect]
     Indication: MULTIPLE MYELOMA
     Route: 048
  3. MELPHALAN HYDROCHLORIDE [Suspect]
     Indication: MULTIPLE MYELOMA
     Route: 065

REACTIONS (1)
  - LUNG NEOPLASM MALIGNANT [None]
